FAERS Safety Report 6097776-7 (Version None)
Quarter: 2009Q1

REPORT INFORMATION
  Report Type: 
  Country: None (occurrence: None)
  Receive Date: 20090223
  Receipt Date: 20081126
  Transmission Date: 20090719
  Serious: Yes (Disabling)
  Sender: FDA-Public Use
  Company Number: WAES 0812USA01176

PATIENT
  Age: 59 Year
  Sex: Female

DRUGS (1)
  1. ZOCOR [Suspect]
     Dosage: PO
     Route: 048

REACTIONS (2)
  - DRUG HYPERSENSITIVITY [None]
  - MUSCULAR WEAKNESS [None]
